FAERS Safety Report 13660626 (Version 4)
Quarter: 2017Q3

REPORT INFORMATION
  Report Type: Report from Study
  Country: US (occurrence: US)
  Receive Date: 20170616
  Receipt Date: 20170712
  Transmission Date: 20171127
  Serious: Yes (Hospitalization, Other)
  Sender: FDA-Public Use
  Company Number: US-GILEAD-2017-0269593

PATIENT
  Age: 62 Year
  Sex: Female
  Weight: 56.4 kg

DRUGS (22)
  1. AMBRISENTAN [Suspect]
     Active Substance: AMBRISENTAN
     Indication: PULMONARY HYPERTENSION
     Dosage: 10 MG, QD
     Route: 048
     Dates: start: 20100816
  2. UPTRAVI [Suspect]
     Active Substance: SELEXIPAG
     Dosage: UNK
     Route: 065
  3. DIGOXIN                            /00545901/ [Concomitant]
     Active Substance: DIGOXIN
  4. UPTRAVI [Suspect]
     Active Substance: SELEXIPAG
     Indication: PRODUCT USED FOR UNKNOWN INDICATION
     Dosage: 1200 UG, UNK
     Route: 065
     Dates: start: 20170526
  5. LASIX [Concomitant]
     Active Substance: FUROSEMIDE
  6. ONDANSETRON [Concomitant]
     Active Substance: ONDANSETRON
  7. TYVASO [Suspect]
     Active Substance: TREPROSTINIL
     Indication: PRODUCT USED FOR UNKNOWN INDICATION
     Dosage: 6 BREATHS, 4 SESSIONS DAILY
     Route: 055
  8. REVATIO [Concomitant]
     Active Substance: SILDENAFIL CITRATE
  9. POTASSIUM CHLORIDE. [Concomitant]
     Active Substance: POTASSIUM CHLORIDE
  10. TRAMADOL. [Concomitant]
     Active Substance: TRAMADOL
  11. CELLCEPT [Concomitant]
     Active Substance: MYCOPHENOLATE MOFETIL\MYCOPHENOLATE MOFETIL HYDROCHLORIDE
  12. HYDROXYCHLOROQUINE                 /00072603/ [Concomitant]
     Active Substance: HYDROXYCHLOROQUINE SULFATE
  13. VITAMIN B12 [Concomitant]
     Active Substance: CYANOCOBALAMIN
  14. IMODIUM [Concomitant]
     Active Substance: LOPERAMIDE HYDROCHLORIDE
  15. ASPIR 81 [Concomitant]
  16. ROPINIROLE. [Concomitant]
     Active Substance: ROPINIROLE
  17. PREVACID [Concomitant]
     Active Substance: LANSOPRAZOLE
  18. LIDOCAINE. [Concomitant]
     Active Substance: LIDOCAINE
  19. AMBRISENTAN [Suspect]
     Active Substance: AMBRISENTAN
     Indication: SCLERODERMA
  20. COUMADIN [Concomitant]
     Active Substance: WARFARIN SODIUM
  21. PHENERGAN [Concomitant]
     Active Substance: PROMETHAZINE HYDROCHLORIDE
  22. ATORVASTATIN [Concomitant]
     Active Substance: ATORVASTATIN

REACTIONS (7)
  - Heart valve incompetence [Recovered/Resolved]
  - Nausea [Not Recovered/Not Resolved]
  - Right ventricular enlargement [Recovered/Resolved]
  - Chest pain [Recovered/Resolved]
  - Pulmonary hypertension [Recovered/Resolved]
  - Vomiting [Recovered/Resolved]
  - Headache [Not Recovered/Not Resolved]
